FAERS Safety Report 9116643 (Version 2)
Quarter: 2013Q2

REPORT INFORMATION
  Report Type: Report from Study
  Country: US (occurrence: US)
  Receive Date: 20130225
  Receipt Date: 20130419
  Transmission Date: 20140414
  Serious: Yes (Other)
  Sender: FDA-Public Use
  Company Number: PHEH2013US004516

PATIENT
  Age: 54 Year
  Sex: Female
  Weight: 58.96 kg

DRUGS (8)
  1. GILENYA [Suspect]
     Indication: RELAPSING-REMITTING MULTIPLE SCLEROSIS
     Dosage: 0.5 MG, QD
     Route: 048
     Dates: start: 201201, end: 201211
  2. LISINOPRIL [Concomitant]
  3. MULTIVITAMIN//VITAMINS NOS [Concomitant]
  4. PREMARIN [Concomitant]
  5. VITAMIN B12 [Concomitant]
  6. VIT D [Concomitant]
  7. FLAXSEED OIL [Concomitant]
  8. CALCIUM [Concomitant]

REACTIONS (3)
  - Macular fibrosis [Unknown]
  - Visual impairment [Unknown]
  - Blood pressure increased [Unknown]
